FAERS Safety Report 5014959-5 (Version None)
Quarter: 2006Q2

REPORT INFORMATION
  Report Type: 
  Country: None (occurrence: None)
  Receive Date: 20060412
  Receipt Date: 20030509
  Transmission Date: 20061013
  Serious: Yes (Hospitalization)
  Sender: FDA-Public Use
  Company Number: PHEH2003US11808

PATIENT
  Age: 11 Year
  Sex: Female

DRUGS (1)
  1. FORADIL [Suspect]

REACTIONS (3)
  - ASTHMA [None]
  - PARAESTHESIA [None]
  - TREMOR [None]
